FAERS Safety Report 5610576-4 (Version None)
Quarter: 2008Q1

REPORT INFORMATION
  Report Type: 
  Country: None (occurrence: None)
  Receive Date: 20080131
  Receipt Date: 20080131
  Transmission Date: 20080703
  Serious: Yes (Disabling)
  Sender: FDA-Public Use
  Company Number: None

PATIENT
  Age: 10 Year
  Sex: Male

DRUGS (1)
  1. GENTAMICIN [Suspect]
     Dosage: 150 MG  Q8H  IV
     Route: 042
     Dates: start: 20071027, end: 20071106

REACTIONS (1)
  - TINNITUS [None]
